FAERS Safety Report 4305540-1 (Version None)
Quarter: 2004Q1

REPORT INFORMATION
  Report Type: 
  Country: None (occurrence: None)
  Receive Date: 20040226
  Receipt Date: 20031119
  Transmission Date: 20041129
  Serious: No
  Sender: FDA-Public Use
  Company Number: US-BRISTOL-MYERS SQUIBB COMPANY-12439196

PATIENT
  Age: 53 Year
  Sex: Male
  Weight: 59 kg

DRUGS (3)
  1. ABILIFY [Suspect]
     Indication: SCHIZOPHRENIA
     Route: 048
     Dates: start: 20030930, end: 20031101
  2. MULTI-VITAMIN [Concomitant]
  3. VITAMIN C [Concomitant]

REACTIONS (1)
  - INSOMNIA [None]
